FAERS Safety Report 6221017 (Version 2)
Quarter: 2013Q2

REPORT INFORMATION
  Report Type: Spontaneous
  Country: US (occurrence: US)
  Receive Date: 20070123
  Receipt Date: 20130416
  Transmission Date: 20140414
  Serious: Yes (Other)
  Sender: FDA-Public Use
  Company Number: US-ELI_LILLY_AND_COMPANY-US200701002715

PATIENT
  Age: 23 Year
  Sex: Male

DRUGS (4)
  1. FLUOXETINE HYDROCHLORIDE [Suspect]
     Indication: MOOD SWINGS
     Dosage: 80 MG, DAILY (1/D)
     Route: 048
  2. CYTARABINE [Concomitant]
     Indication: ACUTE MYELOID LEUKAEMIA (IN REMISSION)
     Dosage: UNK, 2/D
     Route: 042
  3. METHADONE HYDROCHLORIDE [Concomitant]
     Dosage: 85 MG, UNK
  4. QUETIAPINE [Concomitant]
     Indication: ANXIETY
     Dosage: 12.5 MG, EVERY 4 HRS
     Route: 048

REACTIONS (7)
  - Drug interaction [Recovered/Resolved]
  - Serotonin syndrome [Recovered/Resolved]
  - Neutropenia [Recovered/Resolved]
  - Mucosal inflammation [Recovered/Resolved]
  - Pyrexia [Recovered/Resolved]
  - Thrombocytopenia [Recovered/Resolved]
  - Anaemia [Recovered/Resolved]
